FAERS Safety Report 7283506-X (Version None)
Quarter: 2011Q1

REPORT INFORMATION
  Report Type: 
  Country: None (occurrence: None)
  Receive Date: 20110209
  Receipt Date: 20110202
  Transmission Date: 20110831
  Serious: Yes (Hospitalization)
  Sender: FDA-Public Use
  Company Number: AU-BRISTOL-MYERS SQUIBB COMPANY-15436421

PATIENT
  Age: 40 Year
  Sex: Male

DRUGS (12)
  1. BLINDED: PLACEBO [Suspect]
     Indication: HIV INFECTION
     Dosage: 12NOV TO 28NOV2010(17D)
     Route: 048
     Dates: start: 20101112
  2. PRINIVIL [Concomitant]
     Indication: HYPERTENSION
     Dates: start: 20080819
  3. PRAVASTATIN [Concomitant]
     Indication: HYPERCHOLESTEROLAEMIA
     Dates: start: 20081206
  4. NEXIUM [Concomitant]
     Indication: GASTROOESOPHAGEAL REFLUX DISEASE
     Dates: start: 20101112
  5. FAMVIR [Concomitant]
     Indication: HERPES SIMPLEX
     Dates: start: 20080520
  6. STILNOX [Concomitant]
     Indication: INSOMNIA
     Dates: start: 20071219
  7. XANAX [Concomitant]
     Indication: ANXIETY
     Dates: start: 20080509
  8. ATAZANAVIR [Suspect]
     Indication: HIV INFECTION
     Route: 048
     Dates: start: 20101112
  9. TRUVADA [Suspect]
     Indication: HIV INFECTION
     Route: 048
     Dates: start: 20101112
  10. BLINDED: RITONAVIR [Suspect]
     Indication: HIV INFECTION
     Dosage: 1 DF =12NOV-28NOV10 1DF: 29NOV-01DEC2010(3D) 1 DF =02DEC-ONG
     Route: 048
     Dates: start: 20101112
  11. ALLEGRON [Concomitant]
     Indication: MIGRAINE
     Dates: start: 20081205
  12. PREDNISOLONE SODIUM PHOSPHATE [Concomitant]
     Indication: EYE INFECTION
     Dates: start: 20080101

REACTIONS (4)
  - RENAL FAILURE ACUTE [None]
  - GASTROENTERITIS SHIGELLA [None]
  - SEPSIS [None]
  - NEPHRITIS [None]
